FAERS Safety Report 9790033 (Version 1)
Quarter: 2013Q4

REPORT INFORMATION
  Report Type: Spontaneous
  Country: US (occurrence: US)
  Receive Date: 20131231
  Receipt Date: 20131231
  Transmission Date: 20140711
  Serious: Yes (Death)
  Sender: FDA-Public Use
  Company Number: US-ENDO PHARMACEUTICALS INC.-VANT20130072

PATIENT
  Age: 89 Year
  Sex: Male

DRUGS (3)
  1. VANTAS [Suspect]
     Indication: PROSTATE CANCER
     Route: 058
     Dates: start: 20120814
  2. VANTAS [Suspect]
     Route: 058
     Dates: end: 20120814
  3. VANTAS [Suspect]
     Route: 058
     Dates: start: 200908

REACTIONS (1)
  - Death [Fatal]
